FAERS Safety Report 13511045 (Version 2)
Quarter: 2017Q2

REPORT INFORMATION
  Report Type: Spontaneous
  Country: US (occurrence: US)
  Receive Date: 20170503
  Receipt Date: 20170511
  Transmission Date: 20170830
  Serious: Yes (Other)
  Sender: FDA-Public Use
  Company Number: US-ABBVIE-17K-163-1954603-00

PATIENT
  Age: 0 Day
  Sex: Female
  Weight: .45 kg

DRUGS (3)
  1. HUMIRA [Suspect]
     Active Substance: ADALIMUMAB
     Indication: MATERNAL EXPOSURE TIMING UNSPECIFIED
     Route: 064
  2. VITAMIN D [Concomitant]
     Active Substance: CHOLECALCIFEROL
     Indication: PRODUCT USED FOR UNKNOWN INDICATION
  3. HUMIRA [Suspect]
     Active Substance: ADALIMUMAB
     Route: 063

REACTIONS (6)
  - Foetal exposure during pregnancy [Unknown]
  - Gastrooesophageal reflux disease [Recovering/Resolving]
  - Foetal heart rate deceleration abnormality [Recovered/Resolved]
  - Exposure during breast feeding [Unknown]
  - Umbilical cord abnormality [Recovered/Resolved]
  - Delayed fontanelle closure [Recovering/Resolving]

NARRATIVE: CASE EVENT DATE: 20161220
